FAERS Safety Report 6775301-2 (Version None)
Quarter: 2010Q2

REPORT INFORMATION
  Report Type: 
  Country: None (occurrence: None)
  Receive Date: 20100617
  Receipt Date: 20100608
  Transmission Date: 20101027
  Serious: Yes (Other)
  Sender: FDA-Public Use
  Company Number: US-PFIZER INC-2010072076

PATIENT
  Sex: Female

DRUGS (7)
  1. LYRICA [Suspect]
     Indication: NEUROPATHY PERIPHERAL
     Dosage: 50 MG, 1X/DAY
     Route: 048
     Dates: start: 20100511, end: 20100607
  2. METOPROLOL [Concomitant]
     Indication: HYPERTENSION
     Dosage: 50 MG, 1X/DAY
  3. HYDROCHLOROTHIAZIDE [Concomitant]
     Indication: HYPERTENSION
     Dosage: 50 MG, 1X/DAY
  4. SIMVASTATIN [Concomitant]
     Dosage: 80 MG, 1X/DAY
  5. PEPCID [Concomitant]
     Dosage: 20 MG, 2X/DAY
     Route: 048
  6. XANAX [Concomitant]
     Dosage: AS NEEDED
     Route: 048
  7. CADUET [Concomitant]
     Dosage: 40 MG, 1X/DAY
     Route: 048

REACTIONS (2)
  - DIABETES MELLITUS [None]
  - SWOLLEN TONGUE [None]
